FAERS Safety Report 7459800-6 (Version None)
Quarter: 2011Q2

REPORT INFORMATION
  Report Type: 
  Country: None (occurrence: None)
  Receive Date: 20110505
  Receipt Date: 20110502
  Transmission Date: 20111010
  Serious: Yes (Death, Other)
  Sender: FDA-Public Use
  Company Number: VE-PFIZER INC-2011094567

PATIENT
  Age: 92 Year
  Sex: Female

DRUGS (3)
  1. GLUCOFAGE [Concomitant]
     Indication: DIABETES MELLITUS
     Dosage: 250 MG, 3X/DAY
     Route: 048
     Dates: end: 20100908
  2. CAPTOPRIL [Concomitant]
     Indication: HYPERTENSION
     Dosage: 25 MG, 2X/DAY
     Route: 048
     Dates: end: 20100908
  3. LIPITOR [Suspect]
     Indication: HYPERCHOLESTEROLAEMIA
     Dosage: UNK, ONCE DAILY
     Route: 048
     Dates: start: 20100908

REACTIONS (1)
  - HAEMORRHAGIC STROKE [None]
